FAERS Safety Report 5925798-2 (Version None)
Quarter: 2008Q4

REPORT INFORMATION
  Report Type: 
  Country: None (occurrence: None)
  Receive Date: 20081021
  Receipt Date: 20081017
  Transmission Date: 20090506
  Serious: Yes (Other)
  Sender: FDA-Public Use
  Company Number: US-ASTRAZENECA-2008UW11251

PATIENT
  Age: 460 Month
  Sex: Male
  Weight: 88 kg

DRUGS (4)
  1. SEROQUEL [Suspect]
     Indication: BIPOLAR DISORDER
     Dosage: INCLUDING BUT NOT LIMITED TO 200 MG THREE TIMES A DAY
     Route: 048
     Dates: start: 20060101, end: 20070501
  2. SEROQUEL [Suspect]
     Indication: DEPRESSION
     Dosage: INCLUDING BUT NOT LIMITED TO 200 MG THREE TIMES A DAY
     Route: 048
     Dates: start: 20060101, end: 20070501
  3. ABILIFY [Concomitant]
     Dates: start: 20070101
  4. TEGRETOL [Concomitant]

REACTIONS (3)
  - BLOOD CHOLESTEROL INCREASED [None]
  - CARDIAC DISORDER [None]
  - DIABETES MELLITUS [None]
